FAERS Safety Report 22604990 (Version 1)
Quarter: 2023Q2

REPORT INFORMATION
  Report Type: Spontaneous
  Country: FR (occurrence: FR)
  Receive Date: 20230615
  Receipt Date: 20230615
  Transmission Date: 20230722
  Serious: Yes (Other)
  Sender: FDA-Public Use
  Company Number: FR-PFIZER INC-2008150698

PATIENT
  Age: 44 Year
  Sex: Female

DRUGS (1)
  1. SUNITINIB MALATE [Suspect]
     Active Substance: SUNITINIB MALATE
     Indication: Sweat gland tumour
     Dosage: 37.5 MG DAILY, CYCLIC (4/2 SCHEDULE)

REACTIONS (5)
  - Thrombotic microangiopathy [Unknown]
  - Arterial thrombosis [Unknown]
  - Hypertension [Recovering/Resolving]
  - Proteinuria [Recovering/Resolving]
  - Off label use [Unknown]
